FAERS Safety Report 19200339 (Version 1)
Quarter: 2021Q2

REPORT INFORMATION
  Report Type: Spontaneous
  Country: CN (occurrence: CN)
  Receive Date: 20210430
  Receipt Date: 20210430
  Transmission Date: 20210717
  Serious: Yes (Other)
  Sender: FDA-Public Use
  Company Number: CN-SA-2021SA019455

PATIENT
  Age: 48 Year
  Sex: Male

DRUGS (4)
  1. LYXUMIA [Suspect]
     Active Substance: LIXISENATIDE
     Indication: BLOOD GLUCOSE INCREASED
     Dosage: 20 UG, UNK
     Route: 042
     Dates: start: 202012
  2. LYXUMIA [Suspect]
     Active Substance: LIXISENATIDE
     Dosage: 20 UG, UNK
     Route: 065
     Dates: start: 20210115, end: 202101
  3. ALOGLIPTIN. [Concomitant]
     Active Substance: ALOGLIPTIN
     Dosage: 1 DF, QD
  4. GLUCOPHAGE [Concomitant]
     Active Substance: METFORMIN HYDROCHLORIDE
     Dosage: 2 DF, QD

REACTIONS (7)
  - Hypersensitivity [Recovered/Resolved]
  - Suspected product quality issue [Unknown]
  - Erythema [Recovered/Resolved]
  - Pruritus [Unknown]
  - Rash erythematous [Recovered/Resolved]
  - Acne [Recovered/Resolved]
  - Urticaria [Unknown]

NARRATIVE: CASE EVENT DATE: 202101
